FAERS Safety Report 7130782-X (Version None)
Quarter: 2010Q4

REPORT INFORMATION
  Report Type: 
  Country: None (occurrence: None)
  Receive Date: 20101201
  Receipt Date: 20101117
  Transmission Date: 20110411
  Serious: Yes (Hospitalization)
  Sender: FDA-Public Use
  Company Number: PHHY2010JP78877

PATIENT
  Sex: Male
  Weight: 63 kg

DRUGS (14)
  1. DIOVAN [Suspect]
     Indication: HYPERTENSION
     Dosage: 160 MG, DAILY
     Route: 048
     Dates: start: 20071205
  2. NIVADIL [Concomitant]
     Indication: HYPERTENSION
     Dosage: UNK
     Dates: start: 20010919, end: 20080109
  3. BLOPRESS [Concomitant]
     Indication: HYPERTENSION
     Dosage: 4 MG, UNK
     Route: 048
     Dates: start: 20050105, end: 20071204
  4. BLOPRESS [Concomitant]
     Dosage: 8 MG, UNK
     Route: 048
  5. BLOPRESS [Concomitant]
     Dosage: 12 MG, UNK
     Route: 048
  6. COVERSYL [Concomitant]
     Indication: HYPERTENSION
     Dosage: 8 MG, UNK
     Route: 048
     Dates: start: 20061227
  7. ARTIST [Concomitant]
     Indication: HYPERTENSION
     Dosage: 15 MG, UNK
     Route: 048
     Dates: start: 20070718
  8. DOXAZOSIN MESYLATE [Concomitant]
     Indication: HYPERTENSION
     Dosage: 4 MG, UNK
     Route: 048
     Dates: start: 20070425
  9. ADALAT CC [Concomitant]
     Indication: HYPERTENSION
     Dosage: 40 MG, UNK
     Route: 048
     Dates: start: 20080108
  10. CERCINE [Concomitant]
     Dosage: 4 MG, UNK
     Route: 048
     Dates: start: 20010919
  11. ZYLORIC [Concomitant]
     Dosage: 50 MG, UNK
     Route: 048
     Dates: start: 20060906
  12. TICLOPIDINE HCL [Concomitant]
     Dosage: 100 MG, UNK
     Route: 048
     Dates: start: 20060906
  13. ACINON [Concomitant]
     Dosage: 150 MG, UNK
     Route: 048
     Dates: start: 20010919
  14. URSO [Concomitant]
     Dosage: 600 MG, UNK
     Route: 048
     Dates: start: 20061004

REACTIONS (2)
  - INTERSTITIAL LUNG DISEASE [None]
  - PERIARTHRITIS [None]
